FAERS Safety Report 12777150 (Version 1)
Quarter: 2016Q3

REPORT INFORMATION
  Report Type: Spontaneous
  Country: GB (occurrence: GB)
  Receive Date: 20160924
  Receipt Date: 20160924
  Transmission Date: 20161109
  Serious: Yes (Other)
  Sender: FDA-Public Use
  Company Number: GB-BAXTER-2016BAX048158

PATIENT
  Age: 56 Year
  Sex: Male

DRUGS (10)
  1. EXTRANEAL [Suspect]
     Active Substance: CALCIUM CHLORIDE\ICODEXTRIN\MAGNESIUM CHLORIDE\SODIUM CHLORIDE\SODIUM LACTATE
     Indication: PERITONEAL DIALYSIS
     Route: 033
  2. EXTRANEAL [Suspect]
     Active Substance: CALCIUM CHLORIDE\ICODEXTRIN\MAGNESIUM CHLORIDE\SODIUM CHLORIDE\SODIUM LACTATE
     Indication: END STAGE RENAL DISEASE
  3. GLICLAZIDE [Suspect]
     Active Substance: GLICLAZIDE
     Indication: TYPE 2 DIABETES MELLITUS
     Route: 065
  4. GLICLAZIDE [Suspect]
     Active Substance: GLICLAZIDE
     Dosage: INCREASE IN MRONING DOSE (MORE THAN 120 MG)
     Route: 065
  5. DIANEAL [Suspect]
     Active Substance: CALCIUM CHLORIDE\DEXTROSE\MAGNESIUM CHLORIDE\SODIUM CHLORIDE\SODIUM LACTATE
     Indication: PERITONEAL DIALYSIS
     Route: 033
  6. DIANEAL [Suspect]
     Active Substance: CALCIUM CHLORIDE\DEXTROSE\MAGNESIUM CHLORIDE\SODIUM CHLORIDE\SODIUM LACTATE
     Indication: END STAGE RENAL DISEASE
  7. DIANEAL [Suspect]
     Active Substance: CALCIUM CHLORIDE\DEXTROSE\MAGNESIUM CHLORIDE\SODIUM CHLORIDE\SODIUM LACTATE
     Indication: PERITONEAL DIALYSIS
     Route: 033
  8. DIANEAL [Suspect]
     Active Substance: CALCIUM CHLORIDE\DEXTROSE\MAGNESIUM CHLORIDE\SODIUM CHLORIDE\SODIUM LACTATE
     Indication: END STAGE RENAL DISEASE
  9. GLICLAZIDE [Suspect]
     Active Substance: GLICLAZIDE
     Route: 065
  10. GLICLAZIDE [Suspect]
     Active Substance: GLICLAZIDE
     Dosage: DECREASE IN EVENING DOSE (LESS THAN 80 MG)
     Route: 065

REACTIONS (2)
  - Hypoglycaemia [Unknown]
  - Diabetes mellitus inadequate control [Unknown]
